FAERS Safety Report 10529828 (Version 1)
Quarter: 2014Q4

REPORT INFORMATION
  Report Type: Spontaneous
  Country: US (occurrence: None)
  Receive Date: 20141017
  Receipt Date: 20141017
  Transmission Date: 20150528
  Serious: Yes (Other)
  Sender: FDA-Public Use
  Company Number: 2574040

PATIENT
  Age: 62 Year
  Sex: Male
  Weight: 90.1 kg

DRUGS (25)
  1. VEMURAFENIB [Suspect]
     Active Substance: VEMURAFENIB
     Indication: METASTATIC MALIGNANT MELANOMA
     Route: 048
     Dates: start: 20140224, end: 20140410
  2. ZOLPIDEM TARTRATE. [Concomitant]
     Active Substance: ZOLPIDEM TARTRATE
  3. IBUPROFEN. [Concomitant]
     Active Substance: IBUPROFEN
  4. LORATADINE. [Concomitant]
     Active Substance: LORATADINE
  5. MELATONIN [Concomitant]
     Active Substance: MELATONIN
  6. VANCOMYCIN HYDROCHLORIDE FOR INJECTION [Suspect]
     Active Substance: VANCOMYCIN HYDROCHLORIDE
     Indication: CELLULITIS
     Dosage: 1.25 G GRAM(S), 2 DAY
     Route: 042
     Dates: start: 20140403
  7. HYDROMORPHONE HCL [Concomitant]
     Active Substance: HYDROMORPHONE HYDROCHLORIDE
  8. AZITHROMYCIN [Suspect]
     Active Substance: AZITHROMYCIN ANHYDROUS
     Indication: PYREXIA
     Route: 042
     Dates: start: 20140404, end: 20140406
  9. LEVAQUIN [Suspect]
     Active Substance: LEVOFLOXACIN
     Indication: CELLULITIS
     Dosage: 750 MG MILLIGRAM(S), 2 DAY
     Route: 048
     Dates: start: 20140410, end: 20140419
  10. OXYCODONE [Concomitant]
     Active Substance: OXYCODONE
  11. NEUPOGEN [Concomitant]
     Active Substance: FILGRASTIM
  12. LISINOPRIL. [Concomitant]
     Active Substance: LISINOPRIL
  13. FOLIC ACID. [Concomitant]
     Active Substance: FOLIC ACID
  14. PROBIOTICS [Concomitant]
     Active Substance: PROBIOTICS NOS
  15. TRIAMCINOLONE ACETONIDE. [Concomitant]
     Active Substance: TRIAMCINOLONE ACETONIDE
  16. INVESTIGATIONAL DRUG [Suspect]
     Active Substance: INVESTIGATIONAL PRODUCT
     Indication: METASTATIC MALIGNANT MELANOMA
     Dosage: 800 MG MIILGRAM(S), 1 DAY
     Route: 048
     Dates: start: 20140224, end: 20140414
  17. VITAMIN D [Concomitant]
     Active Substance: CHOLECALCIFEROL
  18. FAMOTIDINE. [Concomitant]
     Active Substance: FAMOTIDINE
  19. ACETAMINOPHEN. [Concomitant]
     Active Substance: ACETAMINOPHEN
  20. OMEGA-3-ACID ETHYL ESTER [Concomitant]
  21. AZITHROMYCIN [Suspect]
     Active Substance: AZITHROMYCIN ANHYDROUS
     Indication: NEUTROPHIL COUNT DECREASED
     Route: 042
     Dates: start: 20140404, end: 20140406
  22. ZOSYN [Suspect]
     Active Substance: PIPERACILLIN SODIUM\TAZOBACTAM SODIUM
     Indication: CELLULITIS
     Dosage: 1 HOUR
     Route: 042
     Dates: start: 20140403, end: 20140406
  23. CLOBETASOL [Concomitant]
     Active Substance: CLOBETASOL
  24. ROCEPHIN [Concomitant]
     Active Substance: CEFTRIAXONE SODIUM
  25. ASPIRIN. [Concomitant]
     Active Substance: ASPIRIN

REACTIONS (2)
  - Drug-induced liver injury [None]
  - Cholestasis [None]

NARRATIVE: CASE EVENT DATE: 20140416
